FAERS Safety Report 9830489 (Version 1)
Quarter: 2014Q1

REPORT INFORMATION
  Report Type: Spontaneous
  Country: OM (occurrence: OM)
  Receive Date: 20140120
  Receipt Date: 20140120
  Transmission Date: 20141002
  Serious: Yes (Death)
  Sender: FDA-Public Use
  Company Number: OM-GLAXOSMITHKLINE-B0961295A

PATIENT
  Age: 42 Year
  Sex: Female

DRUGS (2)
  1. ARIXTRA [Suspect]
     Indication: THROMBOSIS PROPHYLAXIS
     Route: 065
     Dates: start: 20140106
  2. LOW MOLECULAR WEIGHT HEPARIN [Concomitant]

REACTIONS (3)
  - Deep vein thrombosis [Not Recovered/Not Resolved]
  - Condition aggravated [Unknown]
  - Pulmonary embolism [Fatal]
